FAERS Safety Report 4688169-5 (Version None)
Quarter: 2005Q2

REPORT INFORMATION
  Report Type: 
  Country: None (occurrence: None)
  Receive Date: 20050610
  Receipt Date: 20041008
  Transmission Date: 20051028
  Serious: Yes (Other)
  Sender: FDA-Public Use
  Company Number: PHNU2004DE03479

PATIENT
  Sex: Male
  Weight: 78 kg

DRUGS (2)
  1. ZOMETA [Suspect]
     Indication: METASTASES TO BONE
     Dosage: 4 MG, QMO
     Dates: start: 20030731, end: 20040826
  2. CASODEX [Concomitant]
     Indication: PROSTATE CANCER METASTATIC
     Dosage: 150MG/DAY
     Route: 048
     Dates: start: 20030624

REACTIONS (6)
  - BACTERIAL INFECTION [None]
  - IMPAIRED HEALING [None]
  - ORAL PAIN [None]
  - OSTEONECROSIS [None]
  - TOOTH EXTRACTION [None]
  - TOOTHACHE [None]
